FAERS Safety Report 6061088-8 (Version None)
Quarter: 2009Q1

REPORT INFORMATION
  Report Type: 
  Country: None (occurrence: None)
  Receive Date: 20090202
  Receipt Date: 20090126
  Transmission Date: 20090719
  Serious: Yes (Other)
  Sender: FDA-Public Use
  Company Number: NO-ABBOTT-09P-122-0500181-00

PATIENT
  Sex: Female

DRUGS (2)
  1. HUMIRA [Suspect]
     Indication: SPONDYLITIS
     Route: 058
     Dates: start: 20080618
  2. SALAZOPYRIN EN [Interacting]
     Indication: SPONDYLITIS
     Route: 048
     Dates: start: 20080505, end: 20080707

REACTIONS (2)
  - DRUG INTERACTION [None]
  - NEUTROPENIA [None]
